FAERS Safety Report 23299793 (Version 1)
Quarter: 2023Q4

REPORT INFORMATION
  Report Type: Spontaneous
  Country: CN (occurrence: CN)
  Receive Date: 20231215
  Receipt Date: 20231215
  Transmission Date: 20240109
  Serious: Yes (Other)
  Sender: FDA-Public Use
  Company Number: CN-PFIZER INC-PV202300199190

PATIENT
  Age: 66 Year
  Sex: Female
  Weight: 58 kg

DRUGS (2)
  1. AVIBACTAM SODIUM [Suspect]
     Active Substance: AVIBACTAM SODIUM
     Indication: Klebsiella infection
     Dosage: 1.25 G, QD
     Route: 042
  2. AVIBACTAM SODIUM [Suspect]
     Active Substance: AVIBACTAM SODIUM
     Indication: Klebsiella infection
     Dosage: 2.5 G, BID
     Route: 042
     Dates: start: 20231023, end: 20231115

REACTIONS (5)
  - Hallucination, visual [Recovered/Resolved]
  - Off label use [Unknown]
  - Product use issue [Unknown]
  - Off label use [Unknown]
  - Toxic encephalopathy [Unknown]

NARRATIVE: CASE EVENT DATE: 20230101
